FAERS Safety Report 4398150-1 (Version None)
Quarter: 2004Q3

REPORT INFORMATION
  Report Type: 
  Country: None (occurrence: None)
  Receive Date: 20040714
  Receipt Date: 20040714
  Transmission Date: 20050211
  Serious: Yes (Death)
  Sender: FDA-Public Use
  Company Number: None

PATIENT
  Age: 53 Year
  Sex: Male
  Weight: 103.8737 kg

DRUGS (8)
  1. ZITHROMAX [Suspect]
     Indication: BRONCHITIS
     Dosage: ^Z PAK^
     Dates: start: 20040615
  2. ALBUTEROL [Suspect]
     Dosage: MDI
  3. MEDROL [Suspect]
     Dosage: DOSPAK
  4. GEODON [Concomitant]
  5. CLOZARIL [Concomitant]
  6. DEPAKOTE [Concomitant]
  7. ZYPREXA [Concomitant]
  8. LOPID [Concomitant]

REACTIONS (1)
  - DEATH [None]
